FAERS Safety Report 8795840 (Version 1)
Quarter: 2012Q4

REPORT INFORMATION
  Report Type: 
  Country: BR (occurrence: BR)
  Receive Date: 20120919
  Receipt Date: 20120919
  Transmission Date: 20130627
  Serious: Yes (Other)
  Sender: FDA-Public Use
  Company Number: PHHY2012BR080654

PATIENT
  Age: 45 Year
  Sex: Female
  Weight: 80 kg

DRUGS (1)
  1. DIOVAN AMLO FIX [Suspect]
     Indication: HYPERTENSION
     Dosage: 1 DF, daily

REACTIONS (13)
  - Left ventricular hypertrophy [Unknown]
  - Type 2 diabetes mellitus [Unknown]
  - Insulin resistance syndrome [Unknown]
  - Obesity [Unknown]
  - Blood cholesterol increased [Unknown]
  - High density lipoprotein decreased [Unknown]
  - Low density lipoprotein increased [Unknown]
  - Blood triglycerides increased [Unknown]
  - Dyslipidaemia [Unknown]
  - Weight increased [Unknown]
  - Waist circumference increased [Unknown]
  - Diastolic dysfunction [Unknown]
  - Blood pressure systolic increased [Unknown]
